FAERS Safety Report 6796389-9 (Version None)
Quarter: 2010Q2

REPORT INFORMATION
  Report Type: 
  Country: None (occurrence: None)
  Receive Date: 20100622
  Receipt Date: 20100616
  Transmission Date: 20101027
  Serious: Yes (Death, Hospitalization, Congenital Anomaly)
  Sender: FDA-Public Use
  Company Number: 2010PL000073

PATIENT
  Age: 4 Day
  Sex: Male
  Weight: 1.02 kg

DRUGS (2)
  1. AZATHIOPRINE [Suspect]
     Indication: PEMPHIGUS
     Dosage: 150 MG;QD
  2. PREDNISOLONE (CON.) [Concomitant]

REACTIONS (10)
  - APLASIA CUTIS CONGENITA [None]
  - CRYPTORCHISM [None]
  - DEATH NEONATAL [None]
  - EAR MALFORMATION [None]
  - MATERNAL DRUGS AFFECTING FOETUS [None]
  - MICROGNATHIA [None]
  - NAIL GROWTH ABNORMAL [None]
  - NIPPLE DISORDER [None]
  - SEPSIS NEONATAL [None]
  - SMALL FOR DATES BABY [None]
